FAERS Safety Report 9254525 (Version 5)
Quarter: 2013Q3

REPORT INFORMATION
  Report Type: Report from Study
  Country: US (occurrence: JP)
  Receive Date: 20130425
  Receipt Date: 20130705
  Transmission Date: 20140515
  Serious: Yes (Hospitalization)
  Sender: FDA-Public Use
  Company Number: JP-FRI-1000044599

PATIENT
  Age: 36 Year
  Sex: Female
  Weight: 70 kg

DRUGS (7)
  1. LINACLOTIDE [Suspect]
     Indication: IRRITABLE BOWEL SYNDROME
     Dosage: 0.5 MG
     Route: 048
     Dates: start: 20130227, end: 20130408
  2. HIRUDOID [Concomitant]
     Dosage: UNK
     Dates: start: 20120707
  3. HIRUDOID [Concomitant]
     Dosage: UNK
     Dates: start: 20120707
  4. ANTEBATE [Concomitant]
  5. DERMOVATE [Concomitant]
     Dates: start: 20120807
  6. KERATINAMIN [Concomitant]
     Dates: start: 20120707
  7. XYZAL [Concomitant]
     Dates: start: 20120707

REACTIONS (1)
  - Diverticulitis [Recovered/Resolved]
